FAERS Safety Report 5714407-3 (Version None)
Quarter: 2008Q2

REPORT INFORMATION
  Report Type: 
  Country: None (occurrence: None)
  Receive Date: 20080423
  Receipt Date: 20080415
  Transmission Date: 20081010
  Serious: Yes (Death)
  Sender: FDA-Public Use
  Company Number: GB-TEVA-170170ISR

PATIENT
  Age: 42 Year
  Sex: Male

DRUGS (1)
  1. CITALOPRAM HYDROBROMIDE [Suspect]
     Route: 048
     Dates: start: 20070919, end: 20070921

REACTIONS (1)
  - COMPLETED SUICIDE [None]
